FAERS Safety Report 8718459 (Version 3)
Quarter: 2012Q4

REPORT INFORMATION
  Report Type: 
  Country: JP (occurrence: JP)
  Receive Date: 20120810
  Receipt Date: 20120904
  Transmission Date: 20130627
  Serious: Yes (Death, Other)
  Sender: FDA-Public Use
  Company Number: JP-ROCHE-1097750

PATIENT
  Age: 63 Year
  Sex: Male

DRUGS (4)
  1. AVASTIN [Suspect]
     Indication: RECTAL CANCER METASTATIC
     Dosage: 5mg/kg
     Route: 041
     Dates: start: 20110506, end: 20110926
  2. ELPLAT [Suspect]
     Indication: RECTAL CANCER METASTATIC
     Dosage: 85mg/m2
     Route: 041
     Dates: start: 20110506, end: 20111121
  3. LEVOFOLINATE [Concomitant]
     Indication: RECTAL CANCER METASTATIC
     Dosage: 200mg/m2
     Route: 041
     Dates: start: 20110506, end: 20111121
  4. 5-FU [Concomitant]
     Indication: RECTAL CANCER METASTATIC
     Route: 041
     Dates: start: 20110506, end: 20111121

REACTIONS (4)
  - Interstitial lung disease [Fatal]
  - Respiratory failure [Fatal]
  - Interstitial lung disease [Fatal]
  - Enterocolitis [Recovered/Resolved]
